FAERS Safety Report 4263578-7 (Version None)
Quarter: 2004Q1

REPORT INFORMATION
  Report Type: 
  Country: None (occurrence: None)
  Receive Date: 20040105
  Receipt Date: 20031212
  Transmission Date: 20041129
  Serious: Yes (Hospitalization, Disabling)
  Sender: FDA-Public Use
  Company Number: PHHO2003CA16210

PATIENT
  Age: 22 Year
  Sex: Male

DRUGS (3)
  1. CLOZARIL [Suspect]
     Indication: SCHIZOPHRENIA
     Route: 048
     Dates: start: 20030707, end: 20031207
  2. OLANZAPINE [Concomitant]
  3. CLOPIXOL [Concomitant]

REACTIONS (6)
  - CONDUCTION DISORDER [None]
  - ELECTROCARDIOGRAM QT SHORTENED [None]
  - ELECTROCARDIOGRAM ST SEGMENT ELEVATION [None]
  - HYPOTENSION [None]
  - QRS AXIS ABNORMAL [None]
  - TACHYCARDIA [None]
